FAERS Safety Report 10148741 (Version 3)
Quarter: 2014Q2

REPORT INFORMATION
  Report Type: Spontaneous
  Country: MX (occurrence: MX)
  Receive Date: 20140502
  Receipt Date: 20140610
  Transmission Date: 20141212
  Serious: Yes (Hospitalization)
  Sender: FDA-Public Use
  Company Number: MX-ELI_LILLY_AND_COMPANY-MX201404001507

PATIENT
  Age: 10 Year
  Sex: Female

DRUGS (3)
  1. STRATTERA [Suspect]
     Indication: ATTENTION DEFICIT/HYPERACTIVITY DISORDER
     Dosage: 40 MG, UNK
     Dates: start: 20140215
  2. STRATTERA [Suspect]
     Dosage: 50 MG, QD
  3. RISPERIDONE [Concomitant]
     Dosage: 1 MG, QD

REACTIONS (4)
  - Aggression [Recovered/Resolved]
  - Anger [Recovered/Resolved]
  - Self injurious behaviour [Recovered/Resolved]
  - Nausea [Recovered/Resolved]
